FAERS Safety Report 4808270-2 (Version None)
Quarter: 2005Q4

REPORT INFORMATION
  Report Type: 
  Country: None (occurrence: None)
  Receive Date: 20051021
  Receipt Date: 20051021
  Transmission Date: 20060501
  Serious: Yes (Other)
  Sender: FDA-Public Use
  Company Number: None

PATIENT
  Age: 58 Year
  Sex: Female
  Weight: 67.1324 kg

DRUGS (1)
  1. CLONAZEPAM [Suspect]
     Indication: ANXIETY
     Dosage: 1 MG 2 TIMES A DAY

REACTIONS (4)
  - DRUG INEFFECTIVE [None]
  - DYSGEUSIA [None]
  - PHARMACEUTICAL PRODUCT COMPLAINT [None]
  - THERAPEUTIC RESPONSE UNEXPECTED WITH DRUG SUBSTITUTION [None]
